FAERS Safety Report 5032615-4 (Version None)
Quarter: 2006Q2

REPORT INFORMATION
  Report Type: 
  Country: None (occurrence: None)
  Receive Date: 20060622
  Receipt Date: 20060327
  Transmission Date: 20061013
  Serious: Yes (Hospitalization, Other)
  Sender: FDA-Public Use
  Company Number: PHNU2006DE01474

PATIENT
  Age: 60 Year
  Sex: Female

DRUGS (2)
  1. SANDIMMUNE [Suspect]
     Indication: DERMATITIS
     Dosage: 100 MG, BID
     Route: 048
     Dates: start: 20060201
  2. SANDIMMUNE [Suspect]
     Dosage: 100MG/DAY
     Route: 048

REACTIONS (5)
  - CEREBROVASCULAR ACCIDENT [None]
  - HAEMOGLOBIN DECREASED [None]
  - MOVEMENT DISORDER [None]
  - SPEECH DISORDER DEVELOPMENTAL [None]
  - WHITE BLOOD CELL COUNT DECREASED [None]
